FAERS Safety Report 4343967-2 (Version None)
Quarter: 2004Q2

REPORT INFORMATION
  Report Type: 
  Country: None (occurrence: None)
  Receive Date: 20040419
  Receipt Date: 20040402
  Transmission Date: 20050107
  Serious: Yes (Hospitalization)
  Sender: FDA-Public Use
  Company Number: 6008276

PATIENT
  Age: 77 Year
  Sex: Female

DRUGS (9)
  1. GLUCOPHAGE [Suspect]
     Indication: DIABETES MELLITUS
     Dosage: (500 MG) ORAL
     Route: 048
     Dates: start: 19990101, end: 20010601
  2. METFORMIN(TABLETS) (METFORMIN) [Suspect]
     Indication: DIABETES MELLITUS
     Dosage: ORAL
     Route: 048
     Dates: start: 20031201, end: 20040101
  3. AMARYL [Suspect]
     Indication: DRUG USE FOR UNKNOWN INDICATION
     Dates: end: 19990101
  4. INNOHEP [Suspect]
     Indication: DRUG USE FOR UNKNOWN INDICATION
     Dates: end: 19990101
  5. PREVISCAN (FLUINDIONE) [Suspect]
     Indication: ATRIAL FIBRILLATION
     Dates: start: 19990101
  6. GLUCOR(ACARBOSE) [Suspect]
     Indication: DRUG USE FOR UNKNOWN INDICATION
     Dates: start: 19990101
  7. PHYSIOTENS (MOXONIDINE) [Concomitant]
  8. CORDARONE [Concomitant]
  9. TENORMIN [Concomitant]

REACTIONS (3)
  - GLYCOSYLATED HAEMOGLOBIN INCREASED [None]
  - PHARMACEUTICAL PRODUCT COMPLAINT [None]
  - THROMBOCYTOPENIA [None]
